FAERS Safety Report 9133013 (Version 3)
Quarter: 2013Q2

REPORT INFORMATION
  Report Type: Report from Study
  Country: BE (occurrence: BE)
  Receive Date: 20130301
  Receipt Date: 20130412
  Transmission Date: 20140414
  Serious: Yes (Hospitalization)
  Sender: FDA-Public Use
  Company Number: BE-ABBOTT-13P-013-1053219-00

PATIENT
  Age: 72 Year
  Sex: Male
  Weight: 64 kg

DRUGS (18)
  1. HUMIRA [Suspect]
     Indication: CROHN^S DISEASE
     Route: 058
     Dates: start: 20120814
  2. PREDNISONE [Suspect]
     Indication: CROHN^S DISEASE
     Route: 048
     Dates: start: 20120614, end: 20120627
  3. PREDNISONE [Suspect]
     Route: 048
     Dates: start: 20120628, end: 20120704
  4. PREDNISONE [Suspect]
     Route: 048
     Dates: start: 20120705, end: 20120711
  5. PREDNISONE [Suspect]
     Route: 048
     Dates: start: 20120712, end: 20120718
  6. PREDNISONE [Suspect]
     Route: 048
     Dates: start: 20120719, end: 20120725
  7. PREDNISONE [Suspect]
     Route: 048
     Dates: start: 20120726, end: 20120801
  8. PREDNISONE [Suspect]
     Route: 048
     Dates: start: 20120802, end: 20120828
  9. PANADOL [Concomitant]
     Indication: HEADACHE
     Dates: start: 20120531
  10. OMEPRAZOLE [Concomitant]
     Indication: ABDOMINAL PAIN UPPER
     Dates: start: 2010
  11. PAROXETINE SANDOZ [Concomitant]
     Indication: DEPRESSION
     Dates: start: 200308
  12. CLOZAN [Concomitant]
     Indication: DEPRESSION
     Dates: start: 200308
  13. SYMBICORT [Concomitant]
     Indication: ASTHMA
     Dates: start: 201004
  14. SYMBICORT [Concomitant]
     Indication: CHRONIC OBSTRUCTIVE PULMONARY DISEASE
  15. SPIRIVA [Concomitant]
     Indication: ASTHMA
     Dates: start: 201004
  16. VENTOLIN [Concomitant]
     Indication: ASTHMA
     Dates: start: 201004
  17. LORMETAZEPAM [Concomitant]
     Indication: SLEEP DISORDER
     Dates: start: 200308
  18. INDAPAMIDE [Concomitant]
     Indication: HYPERTENSION
     Dates: start: 20120926

REACTIONS (1)
  - Cholecystitis [Not Recovered/Not Resolved]
